FAERS Safety Report 19607655 (Version 2)
Quarter: 2021Q3

REPORT INFORMATION
  Report Type: Spontaneous
  Country: IT (occurrence: IT)
  Receive Date: 20210726
  Receipt Date: 20210806
  Transmission Date: 20211014
  Serious: Yes (Other)
  Sender: FDA-Public Use
  Company Number: IT-CELLTRION INC.-2021IT009770

PATIENT

DRUGS (4)
  1. INFLIXIMAB (UNKNOWN) [Suspect]
     Active Substance: INFLIXIMAB
     Dosage: 5MG/KG/EV EVERY 8 WEEKS
     Route: 065
  2. INFLIXIMAB (UNKNOWN) [Suspect]
     Active Substance: INFLIXIMAB
     Dosage: 5 MG/KG, WEEK TWO
     Route: 065
  3. INFLIXIMAB (UNKNOWN) [Suspect]
     Active Substance: INFLIXIMAB
     Dosage: 5 MG/KG, WEEK SIX
     Route: 065
  4. INFLIXIMAB (UNKNOWN) [Suspect]
     Active Substance: INFLIXIMAB
     Indication: COLITIS ULCERATIVE
     Dosage: 5 MG/ KG AT WEEK 0, 2 AND 6
     Route: 065
     Dates: start: 201712

REACTIONS (2)
  - Colitis ulcerative [Unknown]
  - Sebaceous hyperplasia [Recovered/Resolved]
